FAERS Safety Report 7251722-9 (Version None)
Quarter: 2011Q1

REPORT INFORMATION
  Report Type: 
  Country: None (occurrence: None)
  Receive Date: 20110128
  Receipt Date: 20110120
  Transmission Date: 20110831
  Serious: Yes (Hospitalization, Other)
  Sender: FDA-Public Use
  Company Number: GB-MERCK-1005GBR00076

PATIENT
  Age: 67 Year
  Sex: Male

DRUGS (5)
  1. GLICLAZIDE [Concomitant]
     Route: 048
  2. METHOTREXATE [Concomitant]
     Indication: MYASTHENIA GRAVIS
     Route: 048
     Dates: start: 20100201
  3. JANUVIA [Suspect]
     Route: 048
     Dates: start: 20100311, end: 20100510
  4. ROSIGLITAZONE MALEATE [Concomitant]
     Route: 048
     Dates: end: 20100311
  5. METFORMIN [Concomitant]
     Route: 048

REACTIONS (5)
  - GASTROOESOPHAGEAL REFLUX DISEASE [None]
  - ABDOMINAL PAIN UPPER [None]
  - HEADACHE [None]
  - BONE PAIN [None]
  - MYALGIA [None]
